FAERS Safety Report 12688941 (Version 1)
Quarter: 2016Q3

REPORT INFORMATION
  Report Type: Spontaneous
  Country: US (occurrence: US)
  Receive Date: 20160825
  Receipt Date: 20160825
  Transmission Date: 20161109
  Serious: No
  Sender: FDA-Public Use
  Company Number: US-FRI-1000079817

PATIENT
  Sex: Female

DRUGS (3)
  1. LEXAPRO [Suspect]
     Active Substance: ESCITALOPRAM OXALATE
  2. PROZAC [Suspect]
     Active Substance: FLUOXETINE HYDROCHLORIDE
  3. XANAX [Suspect]
     Active Substance: ALPRAZOLAM

REACTIONS (3)
  - Screaming [Unknown]
  - Unevaluable event [Unknown]
  - Drug ineffective [Unknown]
